FAERS Safety Report 7942119-4 (Version None)
Quarter: 2011Q4

REPORT INFORMATION
  Report Type: 
  Country: None (occurrence: None)
  Receive Date: 20111122
  Receipt Date: 20111116
  Transmission Date: 20120403
  Serious: Yes (Hospitalization, Other)
  Sender: FDA-Public Use
  Company Number: AUR-APL-2011-05851

PATIENT
  Age: 69 Year
  Sex: Male

DRUGS (7)
  1. MIRTAZAPINE [Suspect]
     Indication: ANXIETY
     Dosage: 15 MG (15 MG, 1 IN 1 D) , ORAL
     Route: 048
     Dates: start: 20110901, end: 20111028
  2. MIRTAZAPINE [Suspect]
     Indication: DEPRESSION
     Dosage: 15 MG (15 MG, 1 IN 1 D) , ORAL
     Route: 048
     Dates: start: 20110901, end: 20111028
  3. GLYCERYL TRINITRATE (GLYCERYL TRINITRATE) GLYCERYL TRINITRATE (GLYCERY [Concomitant]
  4. WARFARIN (WARFARIN) WARFARIN (WARFARIN) [Concomitant]
  5. RAMIPRIL (RAMIPRIL) RAMIPRIL (RAMIPRIL) [Concomitant]
  6. ATENOLOL (ATENOLOL) ATENOLOL (ATENOLOL) [Concomitant]
  7. SIMVASTATIN [Concomitant]

REACTIONS (4)
  - ANXIETY [None]
  - HYPERVENTILATION [None]
  - UROSEPSIS [None]
  - HALLUCINATION [None]
